FAERS Safety Report 25493393 (Version 1)
Quarter: 2025Q2

REPORT INFORMATION
  Report Type: Spontaneous
  Country: US (occurrence: None)
  Receive Date: 20250627
  Receipt Date: 20250627
  Transmission Date: 20250716
  Serious: Yes (Hospitalization)
  Sender: FDA-CTU
  Company Number: None

PATIENT
  Sex: Female

DRUGS (1)
  1. OPSUMIT [Suspect]
     Active Substance: MACITENTAN
     Indication: Pulmonary arterial hypertension
     Dosage: FREQUENCY : DAILY;?
     Route: 048
     Dates: start: 20221219

REACTIONS (9)
  - Dyspnoea exertional [None]
  - Infection [None]
  - Loss of personal independence in daily activities [None]
  - Chest pain [None]
  - Dizziness [None]
  - Fluid retention [None]
  - Weight increased [None]
  - Oedema peripheral [None]
  - Fatigue [None]
